FAERS Safety Report 13500537 (Version 3)
Quarter: 2017Q2

REPORT INFORMATION
  Report Type: Report from Study
  Country: US (occurrence: US)
  Receive Date: 20170501
  Receipt Date: 20170626
  Transmission Date: 20170830
  Serious: Yes (Death, Hospitalization)
  Sender: FDA-Public Use
  Company Number: US-B.I. PHARMACEUTICALS,INC./RIDGEFIELD-2017-BI-024523

PATIENT
  Age: 69 Year
  Sex: Female

DRUGS (1)
  1. AGGRENOX [Suspect]
     Active Substance: ASPIRIN\DIPYRIDAMOLE
     Indication: CEREBROVASCULAR ACCIDENT PROPHYLAXIS
     Dosage: FORM STRENGTH/ UNIT DOSE: 25 MG/200 MG; DAILY DOSE: 50MG/400MG
     Route: 048
     Dates: start: 2013

REACTIONS (5)
  - Confusional state [Unknown]
  - Fall [Recovered/Resolved]
  - Orthostatic hypertension [Fatal]
  - Myocardial infarction [Fatal]
  - Internal haemorrhage [Unknown]

NARRATIVE: CASE EVENT DATE: 20170421
